FAERS Safety Report 6773598-6 (Version None)
Quarter: 2010Q2

REPORT INFORMATION
  Report Type: 
  Country: None (occurrence: None)
  Receive Date: 20100614
  Receipt Date: 20100610
  Transmission Date: 20101027
  Serious: Yes (Other)
  Sender: FDA-Public Use
  Company Number: 1000011933

PATIENT
  Age: 75 Year
  Sex: Female

DRUGS (8)
  1. THYROLAR-3 [Suspect]
     Indication: HYPOTHYROIDISM
     Dosage: 1 TABLET DAILY (1 IN 1 D), ORAL
     Route: 048
     Dates: start: 19670101
  2. THYROLAR-2 [Suspect]
     Indication: HYPOTHYROIDISM
     Dosage: 1 TABLET DAILY (1 IN 1 D), ORAL
     Route: 048
     Dates: start: 20071201
  3. THYROLAR-1 [Suspect]
     Indication: HYPOTHYROIDISM
     Dosage: 1 TABLET DAILY (1 IN 1 D), ORAL
     Route: 048
     Dates: start: 20071201, end: 20090801
  4. THYROLAR-0.5 [Suspect]
     Indication: HYPOTHYROIDISM
     Dosage: 1 TABLET DAILY (1 IN 1 D), ORAL
     Route: 048
     Dates: start: 20071201, end: 20090801
  5. DIOVAN [Concomitant]
  6. ZIAC [Concomitant]
  7. SIMVASTATIN [Concomitant]
  8. POTASSIUM [Concomitant]

REACTIONS (4)
  - DEPRESSION [None]
  - OSTEOPOROSIS [None]
  - OVARIAN NEOPLASM [None]
  - WEIGHT INCREASED [None]
